FAERS Safety Report 26143045 (Version 1)
Quarter: 2025Q4

REPORT INFORMATION
  Report Type: Spontaneous
  Country: US (occurrence: US)
  Receive Date: 20251211
  Receipt Date: 20251211
  Transmission Date: 20260118
  Serious: Yes (Other)
  Sender: DR REDDYS
  Company Number: None

PATIENT
  Age: 61 Year
  Sex: Female

DRUGS (6)
  1. GEMCITABINE [Suspect]
     Active Substance: GEMCITABINE
     Indication: Ovarian cancer stage III
     Dosage: DRUG START DATE -APR-2016
     Dates: end: 201703
  2. GEMCITABINE [Suspect]
     Active Substance: GEMCITABINE
     Indication: Disease recurrence
  3. CARBOPLATIN [Suspect]
     Active Substance: CARBOPLATIN
     Indication: Ovarian cancer stage III
     Dosage: DRUG START DATE APR-2016
     Dates: end: 201703
  4. CARBOPLATIN [Suspect]
     Active Substance: CARBOPLATIN
     Indication: Disease recurrence
  5. BEVACIZUMAB [Suspect]
     Active Substance: BEVACIZUMAB
     Indication: Ovarian cancer stage III
     Dosage: DRUG START DATE -APR-2016
     Dates: end: 201703
  6. BEVACIZUMAB [Suspect]
     Active Substance: BEVACIZUMAB
     Indication: Disease recurrence

REACTIONS (1)
  - Thrombocytopenia [Unknown]

NARRATIVE: CASE EVENT DATE: 20160101
